FAERS Safety Report 9977300 (Version 1)
Quarter: 2014Q1

REPORT INFORMATION
  Report Type: Report from Study
  Country: US (occurrence: US)
  Receive Date: 20140306
  Receipt Date: 20140306
  Transmission Date: 20141002
  Serious: Yes (Hospitalization)
  Sender: FDA-Public Use
  Company Number: US-ABBVIE-13P-163-1167009-00

PATIENT
  Sex: Female
  Weight: 81.72 kg

DRUGS (16)
  1. HUMIRA [Suspect]
     Indication: RHEUMATOID ARTHRITIS
     Dates: start: 2011, end: 201308
  2. PREDNISONE [Suspect]
     Indication: RHEUMATOID ARTHRITIS
  3. METHOTREXATE [Concomitant]
     Indication: RHEUMATOID ARTHRITIS
  4. FORTEO [Concomitant]
     Indication: BONE DENSITY ABNORMAL
  5. VENTOLIN [Concomitant]
     Indication: ASTHMA
  6. OXYCONTIN [Concomitant]
     Indication: PAIN
  7. HYDROCODONE [Concomitant]
     Indication: PAIN
  8. AMITRIPTYLINE [Concomitant]
     Indication: INSOMNIA
  9. SOMA [Concomitant]
     Indication: PAIN
  10. KLONOPIN [Concomitant]
     Indication: FIBROMYALGIA
  11. VITAMIN D [Concomitant]
     Indication: VITAMIN SUPPLEMENTATION
  12. POTASSIUM [Concomitant]
     Indication: MINERAL SUPPLEMENTATION
  13. FOLIC ACID [Concomitant]
     Indication: VITAMIN SUPPLEMENTATION
  14. GLUCOPHAGE [Concomitant]
     Indication: DIABETES MELLITUS
  15. JANTOVEN [Concomitant]
     Indication: DIABETES MELLITUS
  16. LASIX [Concomitant]
     Indication: FLUID RETENTION

REACTIONS (7)
  - Rib fracture [Recovered/Resolved]
  - Spinal fracture [Recovered/Resolved]
  - Pneumonia [Recovered/Resolved]
  - Thrombosis [Recovered/Resolved]
  - Angiopathy [Not Recovered/Not Resolved]
  - Cough [Recovered/Resolved]
  - Back pain [Not Recovered/Not Resolved]
